FAERS Safety Report 4568371-3 (Version None)
Quarter: 2005Q1

REPORT INFORMATION
  Report Type: 
  Country: None (occurrence: None)
  Receive Date: 20050131
  Receipt Date: 20050117
  Transmission Date: 20050727
  Serious: Yes (Hospitalization, Other)
  Sender: FDA-Public Use
  Company Number: 2005-00207

PATIENT
  Age: 48 Year
  Sex: Female

DRUGS (5)
  1. LOXITANE [Suspect]
     Dosage: ORAL
     Route: 048
     Dates: start: 20041115, end: 20041115
  2. EFFEXOR [Suspect]
     Dosage: ORAL
     Route: 048
     Dates: start: 20041115, end: 20041115
  3. AMISULPRIDE (AMISULPRIDE) UNKNOWN [Suspect]
     Dates: start: 20041115, end: 20041115
  4. VALIUM [Concomitant]
  5. NOCTAMID (LORMETAZEPAM) [Concomitant]

REACTIONS (9)
  - BLOOD PRESSURE DIASTOLIC DECREASED [None]
  - BLOOD PRESSURE SYSTOLIC DECREASED [None]
  - BODY TEMPERATURE DECREASED [None]
  - CIRCULATORY COLLAPSE [None]
  - COMA [None]
  - HYPONATRAEMIA [None]
  - HYPOTHERMIA [None]
  - INTENTIONAL MISUSE [None]
  - MYDRIASIS [None]
